FAERS Safety Report 11136013 (Version 1)
Quarter: 2015Q2

REPORT INFORMATION
  Report Type: Report from Study
  Country: HU (occurrence: HU)
  Receive Date: 20150526
  Receipt Date: 20150526
  Transmission Date: 20150821
  Serious: Yes (Hospitalization)
  Sender: FDA-Public Use
  Company Number: HU-ABBVIE-15P-076-1397167-00

PATIENT
  Age: 71 Year
  Sex: Male

DRUGS (1)
  1. DUODOPA [Suspect]
     Active Substance: CARBIDOPA\LEVODOPA
     Indication: PARKINSON^S DISEASE
     Dosage: MORNING DOSE: 6.5ML; CONTINUOUS DOSE:4.0 ML/H; EXTRA DOSE: 2.0ML
     Route: 050

REACTIONS (6)
  - Hand fracture [Unknown]
  - Fall [Unknown]
  - Limb injury [Unknown]
  - Balance disorder [Unknown]
  - Rib fracture [Unknown]
  - Chest injury [Unknown]

NARRATIVE: CASE EVENT DATE: 20150518
